FAERS Safety Report 21183650 (Version 1)
Quarter: 2022Q3

REPORT INFORMATION
  Report Type: Spontaneous
  Country: NL (occurrence: NL)
  Receive Date: 20220808
  Receipt Date: 20220808
  Transmission Date: 20221027
  Serious: Yes (Other)
  Sender: FDA-Public Use
  Company Number: NL-SUN PHARMACEUTICAL INDUSTRIES LTD-2022RR-347687

PATIENT
  Sex: Male
  Weight: 79 kg

DRUGS (5)
  1. TAMSULOSIN [Suspect]
     Active Substance: TAMSULOSIN
     Indication: Dysuria
     Dosage: 0.4 MILLIGRAM, DAILY, A TABLET ONCE A DAY
     Route: 065
     Dates: start: 2016
  2. FENPROCOUMON TABLET 3MG / FENPROCOUMON SANDOZ TABLET 3MG [Concomitant]
     Indication: Product used for unknown indication
     Dosage: TABLET, 3 MG (MILLIGRAM)
     Route: 065
  3. SIMVASTATINE TABLET FO 40MG / SIMVASTATINE APOTEX TABLET FILMOMHULD 40 [Concomitant]
     Indication: Product used for unknown indication
     Dosage: FILM-COATED TABLET, 40 MG (MILLIGRAMS)
     Route: 065
  4. METOPROLOL CAPSULE 12,5MG / METOPROLOL TARTRAAT CAPSULE 12,5MG NVZA [Concomitant]
     Indication: Product used for unknown indication
     Dosage: CAPSULE, 12.5 MG (MILLIGRAMS)
     Route: 065
  5. AMIODARONE [Concomitant]
     Active Substance: AMIODARONE
     Indication: Product used for unknown indication
     Dosage: TABLET, 200 MG (MILLIGRAM)
     Route: 065

REACTIONS (1)
  - Erectile dysfunction [Not Recovered/Not Resolved]
